FAERS Safety Report 8732551 (Version 2)
Quarter: 2015Q2

REPORT INFORMATION
  Report Type: Report from Study
  Country: US (occurrence: US)
  Receive Date: 20120820
  Receipt Date: 20150406
  Transmission Date: 20150821
  Serious: Yes (Other)
  Sender: FDA-Public Use
  Company Number: US-ROCHE-1101289

PATIENT
  Age: 63 Year
  Sex: Female

DRUGS (12)
  1. ATENOLOL. [Concomitant]
     Active Substance: ATENOLOL
     Route: 065
  2. LIDOCAINE. [Concomitant]
     Active Substance: LIDOCAINE
     Dosage: 30 CC PER 1 HOUR
     Route: 065
  3. BRETYLOL [Concomitant]
     Active Substance: BRETYLIUM TOSYLATE
     Route: 065
  4. PROBENECID. [Concomitant]
     Active Substance: PROBENECID
     Route: 065
  5. ACTIVASE [Suspect]
     Active Substance: ALTEPLASE
     Indication: CHEST PAIN
     Dosage: 50 CCEVERY 30 MINUTES
     Route: 041
     Dates: start: 19960107
  6. ATROPINE [Concomitant]
     Active Substance: ATROPINE
  7. PROCARDIA (UNITED STATES) [Concomitant]
     Route: 065
  8. LIDOCAINE. [Concomitant]
     Active Substance: LIDOCAINE
     Route: 042
  9. EPINEPHRINE. [Concomitant]
     Active Substance: EPINEPHRINE
  10. DOPAMINE [Concomitant]
     Active Substance: DOPAMINE\DOPAMINE HYDROCHLORIDE
     Dosage: 53 CC PER 1 HOUR
     Route: 041
  11. DOPAMINE [Concomitant]
     Active Substance: DOPAMINE\DOPAMINE HYDROCHLORIDE
     Dosage: 100 CC PER 1 HOUR
     Route: 041
  12. ACTIVASE [Suspect]
     Active Substance: ALTEPLASE
     Indication: VENTRICULAR FIBRILLATION

REACTIONS (2)
  - Hypotension [Unknown]
  - Unresponsive to stimuli [Unknown]

NARRATIVE: CASE EVENT DATE: 19960107
